FAERS Safety Report 7605260-1 (Version None)
Quarter: 2011Q3

REPORT INFORMATION
  Report Type: 
  Country: None (occurrence: None)
  Receive Date: 20110705
  Receipt Date: 20110628
  Transmission Date: 20111222
  Serious: Yes (Other)
  Sender: FDA-Public Use
  Company Number: TRP_07794_2011

PATIENT

DRUGS (3)
  1. RIBAVIRIN [Suspect]
     Indication: HEPATITIS C
     Dosage: 1200 MG, PER DAY
  2. TELAPREVIR (TELAPREVIR) [Suspect]
     Indication: HEPATITIS C
     Dosage: 750 MG 1X/8 HOURS
  3. PEGINTERFERON ALFA-2A [Suspect]
     Indication: HEPATITIS C
     Dosage: 180 UG 1X/WEEK

REACTIONS (4)
  - PLATELET COUNT DECREASED [None]
  - NO THERAPEUTIC RESPONSE [None]
  - HEPATITIS C [None]
  - DISEASE RECURRENCE [None]
